FAERS Safety Report 8172468-9 (Version None)
Quarter: 2012Q1

REPORT INFORMATION
  Report Type: 
  Country: None (occurrence: None)
  Receive Date: 20120229
  Receipt Date: 20120229
  Transmission Date: 20120608
  Serious: Yes (Other)
  Sender: FDA-Public Use
  Company Number: NO-BAYER-2012-012892

PATIENT
  Age: 39 Year
  Sex: Female

DRUGS (2)
  1. MIRENA [Suspect]
     Indication: CONTRACEPTION
     Dosage: UNK
     Route: 015
     Dates: start: 20060101, end: 20110628
  2. MIRENA [Suspect]
     Dosage: UNK
     Route: 015
     Dates: start: 20110628, end: 20111206

REACTIONS (4)
  - POST PROCEDURAL HAEMORRHAGE [None]
  - ECTROPION OF CERVIX [None]
  - DEVICE DISLOCATION [None]
  - VAGINAL DISCHARGE [None]
